FAERS Safety Report 8103992-2 (Version None)
Quarter: 2012Q1

REPORT INFORMATION
  Report Type: 
  Country: None (occurrence: None)
  Receive Date: 20120201
  Receipt Date: 20120130
  Transmission Date: 20120608
  Serious: No
  Sender: FDA-Public Use
  Company Number: US-BAYER-2012-010081

PATIENT
  Age: 68 Year
  Sex: Female

DRUGS (7)
  1. LASIX [Concomitant]
  2. SYNTHROID [Concomitant]
  3. NAPROXEN (ALEVE) [Suspect]
     Indication: ARTHRITIS
     Dosage: 2 TAB ONCE DAILY
     Dates: start: 20120123, end: 20120123
  4. IMDUR [Concomitant]
  5. TOPROL-XL [Concomitant]
  6. PROTONIX [Concomitant]
  7. CRESTOR [Concomitant]

REACTIONS (1)
  - PRURITUS [None]
